FAERS Safety Report 12330113 (Version 1)
Quarter: 2016Q2

REPORT INFORMATION
  Report Type: Spontaneous
  Country: US (occurrence: US)
  Receive Date: 20160504
  Receipt Date: 20160504
  Transmission Date: 20160815
  Serious: No
  Sender: FDA-Public Use
  Company Number: PHEH2016US010961

PATIENT
  Sex: Female

DRUGS (1)
  1. JADENU [Suspect]
     Active Substance: DEFERASIROX
     Indication: MYELOFIBROSIS
     Dosage: 720 MG, QD
     Route: 048
     Dates: start: 20160212

REACTIONS (3)
  - Diarrhoea [Unknown]
  - Constipation [Unknown]
  - Gastric disorder [Unknown]
